FAERS Safety Report 17856345 (Version 1)
Quarter: 2020Q2

REPORT INFORMATION
  Report Type: Spontaneous
  Country: US (occurrence: US)
  Receive Date: 20200603
  Receipt Date: 20200603
  Transmission Date: 20200714
  Serious: Yes (Death, Life-Threatening, Hospitalization, Other)
  Sender: FDA-Public Use
  Company Number: US-AMGEN-USASP2020084186

PATIENT
  Age: 69 Year
  Sex: Female

DRUGS (1)
  1. BEVACIZUMAB. [Suspect]
     Active Substance: BEVACIZUMAB
     Indication: OVARIAN CANCER RECURRENT
     Dosage: UNK
     Route: 065

REACTIONS (6)
  - Intestinal perforation [Unknown]
  - Intestinal ischaemia [Unknown]
  - Death [Fatal]
  - Gastrointestinal necrosis [Unknown]
  - Off label use [Unknown]
  - Hypotension [Unknown]
